FAERS Safety Report 14868768 (Version 1)
Quarter: 2018Q2

REPORT INFORMATION
  Report Type: Spontaneous
  Country: US (occurrence: US)
  Receive Date: 20180509
  Receipt Date: 20180509
  Transmission Date: 20180711
  Serious: No
  Sender: FDA-Public Use
  Company Number: US-PFIZER INC-2018188551

PATIENT
  Age: 53 Year
  Sex: Female
  Weight: 127 kg

DRUGS (1)
  1. GABAPENTIN. [Suspect]
     Active Substance: GABAPENTIN
     Indication: NEUROPATHY PERIPHERAL
     Dosage: 300 MG, 3X/DAY
     Route: 048
     Dates: start: 20160603, end: 20170131

REACTIONS (5)
  - Peripheral swelling [Recovered/Resolved]
  - Depression [Recovering/Resolving]
  - Product use in unapproved indication [Unknown]
  - Constipation [Recovered/Resolved]
  - Fluid retention [Unknown]

NARRATIVE: CASE EVENT DATE: 2016
